FAERS Safety Report 16642714 (Version 2)
Quarter: 2019Q3

REPORT INFORMATION
  Report Type: Report from Study
  Country: None (occurrence: US)
  Receive Date: 20190729
  Receipt Date: 20190731
  Transmission Date: 20191004
  Serious: Yes (Other)
  Sender: FDA-Public Use
  Company Number: US-ABBVIE-19K-163-2867056-00

PATIENT
  Sex: Female

DRUGS (1)
  1. CREON [Suspect]
     Active Substance: PANCRELIPASE AMYLASE\PANCRELIPASE LIPASE\PANCRELIPASE PROTEASE
     Indication: PANCREATIC FAILURE
     Route: 065
     Dates: start: 20190418

REACTIONS (12)
  - Haemorrhage [Unknown]
  - Drug hypersensitivity [Unknown]
  - Fall [Unknown]
  - Balance disorder [Unknown]
  - Deep vein thrombosis [Unknown]
  - Limb injury [Unknown]
  - Pancreatic failure [Unknown]
  - Affect lability [Unknown]
  - Electrolyte imbalance [Unknown]
  - Meniere^s disease [Unknown]
  - Weight increased [Unknown]
  - Irritable bowel syndrome [Not Recovered/Not Resolved]

NARRATIVE: CASE EVENT DATE: 2019
